FAERS Safety Report 9717241 (Version 3)
Quarter: 2014Q2

REPORT INFORMATION
  Report Type: Spontaneous
  Country: US (occurrence: US)
  Receive Date: 20131127
  Receipt Date: 20140624
  Transmission Date: 20141212
  Serious: Yes (Other)
  Sender: FDA-Public Use
  Company Number: US-PFIZER INC-2013335687

PATIENT
  Age: 39 Year
  Sex: Female
  Weight: 75 kg

DRUGS (8)
  1. LIPITOR [Suspect]
     Indication: BLOOD TRIGLYCERIDES INCREASED
     Dosage: 10 MG, DAILY
     Route: 048
     Dates: start: 20011227, end: 20020430
  2. LIPITOR [Suspect]
     Indication: LOW DENSITY LIPOPROTEIN INCREASED
     Dosage: 20 MG, DAILY
     Route: 048
     Dates: start: 20020501, end: 20040721
  3. LIPITOR [Suspect]
     Dosage: 10 MG, DAILY
     Route: 048
     Dates: start: 20040721, end: 201108
  4. LIPITOR [Suspect]
     Dosage: 20 MG, DAILY
     Route: 048
     Dates: start: 201108, end: 20130828
  5. LYSINE [Concomitant]
     Indication: IMMUNE SYSTEM DISORDER
     Dosage: 1000 MG, DAILY
     Dates: start: 2009
  6. LYSINE [Concomitant]
     Indication: SKIN DISORDER
  7. ADVIL [Concomitant]
     Indication: HEADACHE
     Dosage: UNK, TWO TABLETS
     Dates: start: 1982
  8. ADVIL [Concomitant]
     Indication: PAIN

REACTIONS (2)
  - Type 2 diabetes mellitus [Not Recovered/Not Resolved]
  - Ovarian cyst [Unknown]
